FAERS Safety Report 23623487 (Version 1)
Quarter: 2024Q1

REPORT INFORMATION
  Report Type: Spontaneous
  Country: US (occurrence: None)
  Receive Date: 20240312
  Receipt Date: 20240312
  Transmission Date: 20240410
  Serious: Yes (Hospitalization)
  Sender: FDA-Public Use
  Company Number: None

PATIENT
  Age: 7 Year
  Sex: Female

DRUGS (1)
  1. VIGABATRIN [Suspect]
     Active Substance: VIGABATRIN
     Indication: Lennox-Gastaut syndrome
     Dosage: FREQ: DISSOLVE CONTENTS QF 2 PACKETS IN 20 ML QF WATER AND GIVE 20 ML BY MOUTH TWICE DAILY
     Route: 048
     Dates: start: 20231017

REACTIONS (1)
  - Respiratory syncytial virus infection [None]

NARRATIVE: CASE EVENT DATE: 20240311
